FAERS Safety Report 26114501 (Version 2)
Quarter: 2025Q4

REPORT INFORMATION
  Report Type: Spontaneous
  Country: US (occurrence: US)
  Receive Date: 20251202
  Receipt Date: 20251210
  Transmission Date: 20260117
  Serious: Yes (Hospitalization, Congenital Anomaly, Other)
  Sender: JOHNSON AND JOHNSON
  Company Number: US-ViiV Healthcare-US2025GSK154379

PATIENT
  Sex: Male

DRUGS (3)
  1. CABENUVA [Suspect]
     Active Substance: CABOTEGRAVIR\RILPIVIRINE
     Indication: HIV infection
     Route: 064
     Dates: start: 2022
  2. AMLODIPINE [Suspect]
     Active Substance: AMLODIPINE BESYLATE
     Indication: Hypertension
     Dosage: 5 MG, 1D
     Route: 064
  3. CABENUVA [Suspect]
     Active Substance: CABOTEGRAVIR\RILPIVIRINE
     Indication: HIV infection
     Dosage: UNK, Q8W
     Route: 064
     Dates: start: 2022

REACTIONS (5)
  - Congenital pyelocaliectasis [Unknown]
  - Foetal growth restriction [Unknown]
  - Neonatal respiratory distress [Unknown]
  - Hydronephrosis [Unknown]
  - Foetal exposure during pregnancy [Unknown]
